FAERS Safety Report 24024798 (Version 1)
Quarter: 2024Q2

REPORT INFORMATION
  Report Type: Report from Study
  Country: US (occurrence: US)
  Receive Date: 20240628
  Receipt Date: 20240628
  Transmission Date: 20240716
  Serious: Yes (Other)
  Sender: FDA-Public Use
  Company Number: US-ABBVIE-5516718

PATIENT
  Age: 60 Year
  Sex: Male

DRUGS (1)
  1. RINVOQ [Suspect]
     Active Substance: UPADACITINIB
     Indication: Rheumatoid arthritis
     Route: 048
     Dates: start: 20231122

REACTIONS (4)
  - Pulmonary embolism [Unknown]
  - Nasopharyngitis [Recovering/Resolving]
  - Dysphonia [Not Recovered/Not Resolved]
  - Embolism [Unknown]

NARRATIVE: CASE EVENT DATE: 20231101
